FAERS Safety Report 19399142 (Version 4)
Quarter: 2021Q3

REPORT INFORMATION
  Report Type: Report from Study
  Country: CO (occurrence: CO)
  Receive Date: 20210610
  Receipt Date: 20210925
  Transmission Date: 20211014
  Serious: Yes (Hospitalization, Other)
  Sender: FDA-Public Use
  Company Number: NVSC2021CO125157

PATIENT
  Sex: Female
  Weight: 55 kg

DRUGS (3)
  1. ENALAPRIL [Concomitant]
     Active Substance: ENALAPRIL
     Indication: HYPERTENSION
     Dosage: UNK, Q12H (STARTED 2 YEARS AGO)
     Route: 048
  2. COSENTYX [Suspect]
     Active Substance: SECUKINUMAB
     Indication: PSORIASIS
     Dosage: 300 MG, QMO
     Route: 058
  3. INSULIN [Concomitant]
     Active Substance: INSULIN NOS
     Indication: DIABETES MELLITUS
     Dosage: UNK, QD (STARTED 2 YEARS AGO)
     Route: 058

REACTIONS (6)
  - Pruritus [Unknown]
  - Thrombosis [Unknown]
  - Mobility decreased [Unknown]
  - Psoriasis [Unknown]
  - Gait disturbance [Unknown]
  - Product supply issue [Unknown]
